FAERS Safety Report 7325320-2 (Version None)
Quarter: 2011Q1

REPORT INFORMATION
  Report Type: 
  Country: None (occurrence: None)
  Receive Date: 20110302
  Receipt Date: 20110217
  Transmission Date: 20110831
  Serious: Yes (Death, Other)
  Sender: FDA-Public Use
  Company Number: US-BAYER-2011-016592

PATIENT
  Age: 3 Month
  Sex: Female

DRUGS (1)
  1. MIRENA [Suspect]

REACTIONS (4)
  - CONVULSION NEONATAL [None]
  - VAGINAL HAEMORRHAGE [None]
  - UMBILICAL CORD HAEMORRHAGE [None]
  - DEATH [None]
